FAERS Safety Report 8554647 (Version 6)
Quarter: 2014Q2

REPORT INFORMATION
  Report Type: Report from Study
  Country: TR (occurrence: TR)
  Receive Date: 20120509
  Receipt Date: 20140408
  Transmission Date: 20141212
  Serious: Yes (Hospitalization)
  Sender: FDA-Public Use
  Company Number: TR-TEVA-336674USA

PATIENT
  Age: 65 Year
  Sex: Male
  Weight: 77 kg

DRUGS (3)
  1. BENDAMUSTINE [Suspect]
     Indication: CHRONIC LYMPHOCYTIC LEUKAEMIA
     Route: 042
     Dates: start: 20120209, end: 20120614
  2. RITUXIMAB [Suspect]
     Indication: CHRONIC LYMPHOCYTIC LEUKAEMIA
     Dates: start: 20120209, end: 20120614
  3. METFORMIN [Concomitant]
     Indication: DIABETES MELLITUS
     Dosage: 170 MILLIGRAM DAILY;
     Dates: start: 2002

REACTIONS (2)
  - Anal abscess [Recovered/Resolved with Sequelae]
  - Neutropenia [Recovered/Resolved]
